FAERS Safety Report 7540257-1 (Version None)
Quarter: 2011Q2

REPORT INFORMATION
  Report Type: 
  Country: None (occurrence: None)
  Receive Date: 20110610
  Receipt Date: 20110527
  Transmission Date: 20111010
  Serious: Yes (Other)
  Sender: FDA-Public Use
  Company Number: PHHY2011US44495

PATIENT
  Sex: Female
  Weight: 90 kg

DRUGS (7)
  1. VYTORIN [Concomitant]
     Indication: HYPERLIPIDAEMIA
     Dosage: 10/20 MG
     Route: 048
     Dates: start: 20100101
  2. FEMARA [Suspect]
     Dosage: 2.5 MG, DAILY
     Route: 048
     Dates: start: 20110125
  3. PRILOSEC [Concomitant]
     Indication: GASTROOESOPHAGEAL REFLUX DISEASE
     Dosage: 40 MG, UNK
     Route: 048
     Dates: start: 20080101
  4. FEMARA [Suspect]
     Indication: BREAST CANCER
     Dosage: 2.5 MG, UNK
     Route: 048
     Dates: start: 20100105
  5. CALCIUM D [Concomitant]
     Indication: OSTEOPENIA
     Dosage: 1500 MG, UNK
     Route: 048
     Dates: start: 20090101
  6. DIOVAN [Concomitant]
     Indication: HYPERTENSION
     Dosage: 80 MG, UNK
     Route: 048
     Dates: start: 20080101
  7. ZYRTEC [Concomitant]
     Indication: HYPERSENSITIVITY
     Dosage: 10 MG, PRN
     Route: 048
     Dates: start: 20080101

REACTIONS (5)
  - FALL [None]
  - BALANCE DISORDER [None]
  - SYNCOPE [None]
  - HEAD INJURY [None]
  - UPPER LIMB FRACTURE [None]
